FAERS Safety Report 10231563 (Version 1)
Quarter: 2014Q2

REPORT INFORMATION
  Report Type: Spontaneous
  Country: US (occurrence: US)
  Receive Date: 20140611
  Receipt Date: 20140611
  Transmission Date: 20141212
  Serious: No
  Sender: FDA-Public Use
  Company Number: US-009507513-1405USA015524

PATIENT
  Sex: Female
  Weight: 73.47 kg

DRUGS (1)
  1. NEXPLANON [Suspect]
     Indication: CONTRACEPTION
     Dosage: 1 ROD/ THREE YEARS
     Route: 059
     Dates: start: 20140130, end: 20140521

REACTIONS (2)
  - Psychosomatic disease [Recovering/Resolving]
  - Implant site pain [Recovering/Resolving]
